FAERS Safety Report 6044350-4 (Version None)
Quarter: 2009Q1

REPORT INFORMATION
  Report Type: 
  Country: None (occurrence: None)
  Receive Date: 20090120
  Receipt Date: 20090108
  Transmission Date: 20090719
  Serious: Yes (Hospitalization)
  Sender: FDA-Public Use
  Company Number: JP-JNJFOC-20080605614

PATIENT
  Age: 5 Decade
  Sex: Male
  Weight: 65 kg

DRUGS (13)
  1. REMICADE [Suspect]
     Route: 042
  2. REMICADE [Suspect]
     Dosage: THIRD CYCLE
     Route: 042
  3. REMICADE [Suspect]
     Dosage: 2ND CYCLE-6 DOSES
     Route: 042
  4. REMICADE [Suspect]
     Indication: CROHN'S DISEASE
     Route: 042
  5. TARGOCID [Suspect]
     Indication: DRUG USE FOR UNKNOWN INDICATION
  6. PENTASA [Suspect]
     Indication: DRUG USE FOR UNKNOWN INDICATION
  7. LOXONIN [Suspect]
     Indication: DRUG USE FOR UNKNOWN INDICATION
  8. ROPION [Concomitant]
     Route: 042
  9. CYANOCOBALAMIN [Concomitant]
     Route: 048
  10. LUVOX [Concomitant]
     Route: 048
  11. OMEPRAL [Concomitant]
     Route: 048
  12. BIOFERMIN R [Concomitant]
     Route: 048
  13. DIFLUCAN [Concomitant]
     Route: 048

REACTIONS (13)
  - BACTERAEMIA [None]
  - BLOOD PRESSURE DECREASED [None]
  - CANDIDA ENDOPHTHALMITIS [None]
  - CYANOSIS [None]
  - DEVICE RELATED INFECTION [None]
  - DIARRHOEA [None]
  - DRUG INEFFECTIVE [None]
  - INFUSION RELATED REACTION [None]
  - MENINGITIS BACTERIAL [None]
  - PYREXIA [None]
  - RASH PRURITIC [None]
  - RENAL IMPAIRMENT [None]
  - SYSTEMIC CANDIDA [None]
